FAERS Safety Report 23512170 (Version 1)
Quarter: 2024Q1

REPORT INFORMATION
  Report Type: Other
  Country: IT (occurrence: None)
  Receive Date: 20240212
  Receipt Date: 20240212
  Transmission Date: 20240409
  Serious: Yes (Death, Other)
  Sender: FDA-Public Use
  Company Number: IT-ROCHE-3506473

PATIENT

DRUGS (2)
  1. RITUXIMAB [Suspect]
     Active Substance: RITUXIMAB
     Indication: Follicular lymphoma refractory
     Dosage: EVERY 12 WEEKS FOR 8 DOSES.
     Route: 041
  2. LENALIDOMIDE [Suspect]
     Active Substance: LENALIDOMIDE
     Indication: Follicular lymphoma refractory
     Dosage: 10 MG/DAY, DAYS 1-21 PER 28-DAY CYCLE FOR 24 CYCLES
     Route: 065

REACTIONS (7)
  - Neoplasm [Fatal]
  - COVID-19 [Fatal]
  - Infection [Fatal]
  - Cachexia [Fatal]
  - Myocardial infarction [Fatal]
  - Neutropenia [Unknown]
  - Gastrointestinal disorder [Unknown]
